FAERS Safety Report 12192604 (Version 1)
Quarter: 2016Q1

REPORT INFORMATION
  Report Type: Spontaneous
  Country: FR (occurrence: FR)
  Receive Date: 20160318
  Receipt Date: 20160318
  Transmission Date: 20160526
  Serious: Yes (Hospitalization)
  Sender: FDA-Public Use
  Company Number: FR-PFIZER INC-2016154036

PATIENT
  Age: 91 Year
  Sex: Female

DRUGS (5)
  1. MONOCRIXO [Suspect]
     Active Substance: TRAMADOL HYDROCHLORIDE
     Dosage: 200 MG, 1X/DAY
     Route: 048
     Dates: start: 20160112, end: 20160112
  2. PANTOPRAZOLE [Concomitant]
     Active Substance: PANTOPRAZOLE SODIUM
     Dosage: 20 MG, UNK
     Route: 048
     Dates: start: 20160112, end: 20160112
  3. TRAMADOL HYDROCHLORIDE. [Concomitant]
     Active Substance: TRAMADOL HYDROCHLORIDE
     Dosage: 37.5/325 MG, UNK
     Dates: start: 20160112, end: 20160112
  4. LYRICA [Suspect]
     Active Substance: PREGABALIN
     Dosage: 150 MG, UNK
     Route: 048
     Dates: start: 20160112, end: 20160112
  5. LIPTRUZET /02624801/ [Concomitant]
     Dosage: [ATORVASTATIN CALCIUM 10 MG/ EZETIMIBE 40 MG], UNK
     Route: 048
     Dates: start: 20160112, end: 20160112

REACTIONS (6)
  - Vomiting [Recovered/Resolved]
  - Cell death [Recovered/Resolved]
  - Confusional state [Recovered/Resolved]
  - Poisoning [Recovered/Resolved]
  - Pneumonia aspiration [Recovered/Resolved]
  - Wrong drug administered [Recovered/Resolved]

NARRATIVE: CASE EVENT DATE: 20160112
